FAERS Safety Report 5087361-8 (Version None)
Quarter: 2006Q3

REPORT INFORMATION
  Report Type: 
  Country: None (occurrence: None)
  Receive Date: 20060824
  Receipt Date: 20060816
  Transmission Date: 20061208
  Serious: Yes (Other)
  Sender: FDA-Public Use
  Company Number: US-AVENTIS-200616952US

PATIENT
  Sex: Female
  Weight: 147.72 kg

DRUGS (9)
  1. LOVENOX [Suspect]
     Dates: start: 20060801, end: 20060801
  2. LOVENOX [Suspect]
     Dates: start: 20060802
  3. COUMADIN [Concomitant]
     Dosage: DOSE: UNK
     Dates: end: 20060101
  4. COUMADIN [Concomitant]
     Dosage: DOSE: UNK
  5. SYNTHROID [Concomitant]
     Dosage: DOSE: UNK
  6. ATENOLOL [Concomitant]
     Dosage: DOSE: UNK
  7. AVANDIA [Concomitant]
     Dosage: DOSE: UNK
  8. ANTIDEPRESSANTS [Concomitant]
     Dosage: DOSE: UNK
  9. ADVAIR DISKUS 100/50 [Concomitant]
     Dosage: DOSE: UNK

REACTIONS (2)
  - INJECTION SITE HAEMATOMA [None]
  - INTERNATIONAL NORMALISED RATIO INCREASED [None]
